FAERS Safety Report 6575629-5 (Version None)
Quarter: 2010Q1

REPORT INFORMATION
  Report Type: 
  Country: None (occurrence: None)
  Receive Date: 20100209
  Receipt Date: 20100203
  Transmission Date: 20100710
  Serious: Yes (Hospitalization)
  Sender: FDA-Public Use
  Company Number: B0632191A

PATIENT
  Sex: Female

DRUGS (7)
  1. ALKERAN [Suspect]
     Indication: MULTIPLE MYELOMA
     Dosage: 13MG PER DAY
     Route: 065
     Dates: start: 20090907, end: 20090910
  2. VELCADE [Suspect]
     Indication: MULTIPLE MYELOMA
     Dosage: .9MG PER DAY
     Route: 042
     Dates: start: 20090928, end: 20091109
  3. DELTACORTENE [Suspect]
     Indication: MULTIPLE MYELOMA
     Dosage: 25MG PER DAY
     Route: 048
     Dates: start: 20090907, end: 20090910
  4. ZOVIRAX [Concomitant]
     Dosage: 1200MG PER DAY
     Route: 048
     Dates: start: 20090907, end: 20091110
  5. BACTRIM [Concomitant]
     Route: 048
  6. EPREX [Concomitant]
     Route: 058
  7. ZOMETA [Concomitant]
     Route: 042

REACTIONS (1)
  - GASTROENTERITIS ESCHERICHIA COLI [None]
